FAERS Safety Report 6816285-8 (Version None)
Quarter: 2010Q2

REPORT INFORMATION
  Report Type: 
  Country: None (occurrence: None)
  Receive Date: 20100630
  Receipt Date: 20100616
  Transmission Date: 20101027
  Serious: Yes (Death, Hospitalization, Other)
  Sender: FDA-Public Use
  Company Number: MC201000183

PATIENT
  Age: 80 Year
  Sex: Female

DRUGS (5)
  1. ANGIOMAX [Suspect]
     Indication: CATHETERISATION CARDIAC
     Dosage: 5 ML, BOLUS, INTRAVENOUS; 95.3 ML, HR, INTRAVENOUS
     Route: 042
     Dates: start: 20071105, end: 20071105
  2. ANGIOMAX [Suspect]
     Indication: CATHETERISATION CARDIAC
     Dosage: 5 ML, BOLUS, INTRAVENOUS; 95.3 ML, HR, INTRAVENOUS
     Route: 042
     Dates: start: 20071105
  3. HEPARIN [Suspect]
     Dosage: 800 IU, HR WITH AN APTT GOAL OF 50-67 SECONDS, IV DRIP; 800 IU, HR
     Route: 041
     Dates: start: 20071105, end: 20071106
  4. HEPARIN [Suspect]
     Dosage: 800 IU, HR WITH AN APTT GOAL OF 50-67 SECONDS, IV DRIP; 800 IU, HR
     Route: 041
     Dates: start: 20071106
  5. SEROQUEL [Concomitant]

REACTIONS (15)
  - ACUTE RESPIRATORY FAILURE [None]
  - ANOXIC ENCEPHALOPATHY [None]
  - CARDIAC PROCEDURE COMPLICATION [None]
  - CEREBRAL ARTERY EMBOLISM [None]
  - EMBOLISM [None]
  - HAEMATOMA [None]
  - HYPOTENSION [None]
  - ISCHAEMIC CEREBRAL INFARCTION [None]
  - MULTI-ORGAN FAILURE [None]
  - MYOCARDIAL INFARCTION [None]
  - PERIPHERAL EMBOLISM [None]
  - PNEUMONIA ASPIRATION [None]
  - PURULENT DISCHARGE [None]
  - UNRESPONSIVE TO STIMULI [None]
  - VESSEL PUNCTURE SITE HAEMATOMA [None]
